FAERS Safety Report 5515124-5 (Version None)
Quarter: 2007Q4

REPORT INFORMATION
  Report Type: 
  Country: None (occurrence: None)
  Receive Date: 20071113
  Receipt Date: 20070111
  Transmission Date: 20080405
  Serious: No
  Sender: FDA-Public Use
  Company Number: A0635358A

PATIENT
  Age: 86 Year
  Sex: Female

DRUGS (3)
  1. COREG [Suspect]
     Indication: DRUG USE FOR UNKNOWN INDICATION
     Dosage: 3.125MG TWICE PER DAY
     Route: 048
     Dates: start: 20060701
  2. COUMADIN [Concomitant]
  3. LANOXIN [Concomitant]

REACTIONS (1)
  - ARTHRITIS [None]
